FAERS Safety Report 5442911-4 (Version None)
Quarter: 2007Q3

REPORT INFORMATION
  Report Type: 
  Country: None (occurrence: None)
  Receive Date: 20070830
  Receipt Date: 20070816
  Transmission Date: 20080115
  Serious: Yes (Other)
  Sender: FDA-Public Use
  Company Number: 2007-03913

PATIENT
  Age: 74 Year
  Sex: Female

DRUGS (5)
  1. KENTERA (WATSON LABORATORIES)(OXYBUTYNIN) TRANSDERMAL PATCH, 3.9MG [Suspect]
     Indication: DRUG USE FOR UNKNOWN INDICATION
     Dosage: 3.9 MG, DAILY, TRANSDERMAL
     Route: 062
     Dates: start: 20070703, end: 20070811
  2. STALEVO 100 [Concomitant]
  3. ELDEPRYL [Concomitant]
  4. SIFROL (PRAMIPEXOLE DIHYDROCHLORIDE) [Concomitant]
  5. RENITEC [Concomitant]

REACTIONS (1)
  - HALLUCINATION, VISUAL [None]
